FAERS Safety Report 16621774 (Version 1)
Quarter: 2019Q3

REPORT INFORMATION
  Report Type: Spontaneous
  Country: CN (occurrence: CN)
  Receive Date: 20190723
  Receipt Date: 20190723
  Transmission Date: 20191004
  Serious: Yes (Hospitalization)
  Sender: FDA-Public Use
  Company Number: CN-BAXTER-2019BAX014125

PATIENT
  Age: 53 Year
  Sex: Female
  Weight: 60 kg

DRUGS (10)
  1. 0.9% SODIUM CHLORIDE INJECTION [Suspect]
     Active Substance: SODIUM CHLORIDE
     Dosage: DOSE RE-INTRODUCED ENDOXAN + 0.9% NS
     Route: 042
  2. ETOPOSIDE. [Suspect]
     Active Substance: ETOPOSIDE
     Indication: LYMPHOMA
     Dosage: ETOPOSIDE + EPIRUBICIN + 0.9% NS, DAY 1 TO 4
     Route: 041
     Dates: start: 20190115, end: 20190118
  3. EPIRUBICIN HYDROCHLORIDE. [Suspect]
     Active Substance: EPIRUBICIN HYDROCHLORIDE
     Indication: LYMPHOMA
     Dosage: ETOPOSIDE + EPIRUBICIN + 0.9% NS, DAY 1 TO 4
     Route: 041
     Dates: start: 20190115, end: 20190118
  4. 0.9% SODIUM CHLORIDE INJECTION [Suspect]
     Active Substance: SODIUM CHLORIDE
     Dosage: DOSE RE-INTRODUCED ETOPOSIDE + EPIRUBICIN + 0.9% NS,
     Route: 041
  5. 0.9% SODIUM CHLORIDE INJECTION [Suspect]
     Active Substance: SODIUM CHLORIDE
     Dosage: ETOPOSIDE + EPIRUBICIN + 0.9% NS, DAY 1 TO 4
     Route: 041
     Dates: start: 20190115, end: 20190118
  6. EPIRUBICIN HYDROCHLORIDE. [Suspect]
     Active Substance: EPIRUBICIN HYDROCHLORIDE
     Dosage: DOSE RE-INTRODUCED ETOPOSIDE + EPIRUBICIN + 0.9% NS
     Route: 041
  7. 0.9% SODIUM CHLORIDE INJECTION [Suspect]
     Active Substance: SODIUM CHLORIDE
     Indication: MEDICATION DILUTION
     Dosage: ENDOXAN + 0.9% NS, DAY 5
     Route: 042
     Dates: start: 20190119, end: 20190119
  8. ETOPOSIDE. [Suspect]
     Active Substance: ETOPOSIDE
     Dosage: DOSE RE-INTRODUCED ETOPOSIDE + EPIRUBICIN + 0.9% NS
     Route: 041
  9. ENDOXAN [Suspect]
     Active Substance: CYCLOPHOSPHAMIDE
     Dosage: DOSE REINTRODUCED WITH ENDOXAN + 0.9% NS
     Route: 042
  10. ENDOXAN [Suspect]
     Active Substance: CYCLOPHOSPHAMIDE
     Indication: LYMPHOMA
     Dosage: ENDOXAN + 0.9% NS, DAY 5
     Route: 042
     Dates: start: 20190119, end: 20190119

REACTIONS (1)
  - Bone marrow failure [Recovering/Resolving]

NARRATIVE: CASE EVENT DATE: 20190125
